FAERS Safety Report 21257452 (Version 1)
Quarter: 2022Q3

REPORT INFORMATION
  Report Type: Spontaneous
  Country: US (occurrence: US)
  Receive Date: 20220826
  Receipt Date: 20220826
  Transmission Date: 20221026
  Serious: Yes (Death, Other)
  Sender: FDA-Public Use
  Company Number: US-SA-SAC20220823001908

PATIENT
  Age: 69 Year
  Sex: Female

DRUGS (1)
  1. ZANTAC [Suspect]
     Active Substance: RANITIDINE HYDROCHLORIDE
     Indication: Dyspepsia
     Dosage: 150 MG DAILY
     Route: 065
     Dates: start: 200501, end: 201502

REACTIONS (2)
  - Death [Fatal]
  - Gastric cancer [Unknown]

NARRATIVE: CASE EVENT DATE: 20141110
